FAERS Safety Report 11274826 (Version 2)
Quarter: 2015Q3

REPORT INFORMATION
  Report Type: Report from Study
  Country: US (occurrence: US)
  Receive Date: 20150716
  Receipt Date: 20150812
  Transmission Date: 20151125
  Serious: No
  Sender: FDA-Public Use
  Company Number: US-ELI_LILLY_AND_COMPANY-US201507004913

PATIENT
  Age: 62 Year
  Sex: Female

DRUGS (6)
  1. CALCIUM [Concomitant]
     Active Substance: CALCIUM
  2. ARMOUR THYROID [Concomitant]
     Active Substance: THYROID, PORCINE\THYROID, UNSPECIFIED
     Dosage: 180 MG, UNK
  3. TERIPARATIDE [Suspect]
     Active Substance: TERIPARATIDE
     Dosage: UNK, QD
     Route: 065
  4. VITAMIN D [Concomitant]
     Active Substance: CHOLECALCIFEROL
  5. TERIPARATIDE [Suspect]
     Active Substance: TERIPARATIDE
     Indication: BONE DISORDER
     Dosage: UNK, QD
     Route: 065
     Dates: start: 201505, end: 20150629
  6. NATURE-THROID [Concomitant]
     Active Substance: THYROID, PORCINE
     Dosage: 113 MG, QD
     Route: 065
     Dates: start: 201507

REACTIONS (4)
  - Malaise [Unknown]
  - Asthenia [Unknown]
  - Dry skin [Unknown]
  - Blood thyroid stimulating hormone increased [Not Recovered/Not Resolved]

NARRATIVE: CASE EVENT DATE: 20150630
